FAERS Safety Report 23751833 (Version 5)
Quarter: 2025Q2

REPORT INFORMATION
  Report Type: Spontaneous
  Country: BE (occurrence: BE)
  Receive Date: 20240417
  Receipt Date: 20250502
  Transmission Date: 20250716
  Serious: Yes (Other)
  Sender: PFIZER
  Company Number: BE-OPELLA-2024OHG009583

PATIENT
  Age: 56 Year
  Sex: Female

DRUGS (10)
  1. PANTOPRAZOLE [Interacting]
     Active Substance: PANTOPRAZOLE
     Route: 065
  2. FLUCONAZOLE [Interacting]
     Active Substance: FLUCONAZOLE
     Indication: Infection prophylaxis
     Route: 065
     Dates: start: 20221230
  3. ACYCLOVIR [Suspect]
     Active Substance: ACYCLOVIR
     Indication: Infection prophylaxis
     Route: 065
     Dates: start: 20221230
  4. TACROLIMUS [Interacting]
     Active Substance: TACROLIMUS
     Indication: Immunosuppressant drug therapy
     Route: 065
  5. PIPERACILLIN SODIUM\TAZOBACTAM SODIUM [Suspect]
     Active Substance: PIPERACILLIN SODIUM\TAZOBACTAM SODIUM
     Route: 065
     Dates: start: 20230102
  6. MYCOPHENOLIC ACID [Suspect]
     Active Substance: MYCOPHENOLIC ACID
     Indication: Immunosuppressant drug therapy
     Route: 065
  7. REMDESIVIR [Suspect]
     Active Substance: REMDESIVIR
     Indication: COVID-19
     Route: 042
     Dates: start: 20230107, end: 20230107
  8. REMDESIVIR [Suspect]
     Active Substance: REMDESIVIR
     Route: 042
     Dates: start: 20230108, end: 20230108
  9. URSODIOL [Suspect]
     Active Substance: URSODIOL
     Route: 065
  10. VEKLURY [Suspect]
     Active Substance: REMDESIVIR
     Indication: COVID-19
     Dates: start: 20230107, end: 20230108

REACTIONS (6)
  - Drug interaction [Unknown]
  - Lactic acidosis [Recovered/Resolved]
  - Blood lactate dehydrogenase increased [Recovering/Resolving]
  - Hepatotoxicity [Recovering/Resolving]
  - Alanine aminotransferase increased [Recovered/Resolved]
  - Aspartate aminotransferase increased [Recovered/Resolved]
